FAERS Safety Report 10062983 (Version 1)
Quarter: 2014Q1

REPORT INFORMATION
  Report Type: Spontaneous
  Country: US (occurrence: None)
  Receive Date: 20140318
  Receipt Date: 20140318
  Transmission Date: 20141002
  Serious: Yes (Other)
  Sender: FDA-Public Use
  Company Number: 163-21660-13123865

PATIENT
  Sex: Female
  Weight: 77.11 kg

DRUGS (2)
  1. ABRAXANE [Suspect]
     Indication: BREAST CANCER METASTATIC
     Dosage: 8 MONTHS AGO-11/2013
  2. GEMZAR (GEMCITABINE HYDROCHLORIDE) (UNKNOWN) [Concomitant]

REACTIONS (1)
  - Pleural effusion [None]
